FAERS Safety Report 10446723 (Version 1)
Quarter: 2014Q3

REPORT INFORMATION
  Report Type: Spontaneous
  Country: US (occurrence: None)
  Receive Date: 20140910
  Receipt Date: 20140910
  Transmission Date: 20150326
  Serious: Yes (Life-Threatening, Hospitalization, Other)
  Sender: FDA-Public Use
  Company Number: None

PATIENT
  Age: 37 Year
  Sex: Female
  Weight: 74.84 kg

DRUGS (3)
  1. PERCOCET [Suspect]
     Active Substance: ACETAMINOPHEN\OXYCODONE HYDROCHLORIDE
     Indication: INTERVERTEBRAL DISC PROTRUSION
     Dosage: ONE PILL THREE TIMES DAILY
     Dates: start: 20140814, end: 20140822
  2. PERCOCET [Suspect]
     Active Substance: ACETAMINOPHEN\OXYCODONE HYDROCHLORIDE
     Indication: BACK PAIN
     Dosage: ONE PILL THREE TIMES DAILY
     Dates: start: 20140814, end: 20140822
  3. PERCOCET [Suspect]
     Active Substance: ACETAMINOPHEN\OXYCODONE HYDROCHLORIDE
     Indication: PAIN IN EXTREMITY
     Dosage: ONE PILL THREE TIMES DAILY
     Dates: start: 20140814, end: 20140822

REACTIONS (8)
  - Product substitution issue [None]
  - VIIth nerve paralysis [None]
  - Swelling [None]
  - Hypertension [None]
  - Product quality issue [None]
  - Migraine [None]
  - Inadequate analgesia [None]
  - Swelling face [None]

NARRATIVE: CASE EVENT DATE: 20140822
